FAERS Safety Report 16029054 (Version 1)
Quarter: 2019Q1

REPORT INFORMATION
  Report Type: Spontaneous
  Country: US (occurrence: US)
  Receive Date: 20190304
  Receipt Date: 20190304
  Transmission Date: 20190418
  Serious: Yes (Death)
  Sender: FDA-Public Use
  Company Number: PHHY2019US048113

PATIENT

DRUGS (4)
  1. CARBOPLATIN. [Concomitant]
     Active Substance: CARBOPLATIN
     Indication: OESOPHAGEAL CARCINOMA
     Dosage: UNK UNK, QW
     Route: 065
  2. CARBOPLATIN. [Concomitant]
     Active Substance: CARBOPLATIN
     Indication: ADENOCARCINOMA
  3. EVEROLIMUS. [Suspect]
     Active Substance: EVEROLIMUS
     Indication: OESOPHAGEAL CARCINOMA
     Dosage: 2.5 MG, QOD
     Route: 048
  4. EVEROLIMUS. [Suspect]
     Active Substance: EVEROLIMUS
     Indication: ADENOCARCINOMA

REACTIONS (2)
  - Intestinal ischaemia [Fatal]
  - Product use in unapproved indication [Unknown]
